FAERS Safety Report 24997636 (Version 2)
Quarter: 2025Q1

REPORT INFORMATION
  Report Type: Spontaneous
  Country: DE (occurrence: DE)
  Receive Date: 20250222
  Receipt Date: 20250324
  Transmission Date: 20250408
  Serious: Yes (Hospitalization)
  Sender: NOVITIUM PHARMA
  Company Number: DE-NOVITIUMPHARMA-2025DENVP00456

PATIENT
  Age: 72 Year
  Sex: Male

DRUGS (4)
  1. PYRIDOSTIGMINE BROMIDE [Suspect]
     Active Substance: PYRIDOSTIGMINE BROMIDE
     Indication: Myasthenia gravis
     Dates: start: 2023
  2. PREDNISOLONE [Concomitant]
     Active Substance: PREDNISOLONE
  3. AZATHIOPRINE [Concomitant]
     Active Substance: AZATHIOPRINE
  4. RAVULIZUMAB [Concomitant]
     Active Substance: RAVULIZUMAB
     Dates: start: 202310

REACTIONS (2)
  - COVID-19 [Unknown]
  - Drug ineffective [Unknown]
